FAERS Safety Report 25670125 (Version 1)
Quarter: 2025Q3

REPORT INFORMATION
  Report Type: Spontaneous
  Country: TR (occurrence: TR)
  Receive Date: 20250812
  Receipt Date: 20250812
  Transmission Date: 20251020
  Serious: Yes (Other)
  Sender: ASCENT PHARMACEUTICALS INC
  Company Number: TR-ASCENT-2025ASLIT00172

PATIENT

DRUGS (2)
  1. IBUPROFEN [Suspect]
     Active Substance: IBUPROFEN
     Indication: Product used for unknown indication
     Route: 065
  2. IBUPROFEN [Suspect]
     Active Substance: IBUPROFEN
     Indication: Drug provocation test

REACTIONS (7)
  - Anaphylactic reaction [Unknown]
  - Angioedema [Unknown]
  - Pruritus [Unknown]
  - Cyanosis [Unknown]
  - Decreased activity [Unknown]
  - Anxiety [Unknown]
  - Vertigo [Unknown]
